FAERS Safety Report 11586741 (Version 1)
Quarter: 2015Q4

REPORT INFORMATION
  Report Type: Spontaneous
  Country: US (occurrence: US)
  Receive Date: 20151001
  Receipt Date: 20151001
  Transmission Date: 20160304
  Serious: No
  Sender: FDA-Public Use
  Company Number: US-PFIZER INC-2015324892

PATIENT
  Age: 53 Year
  Sex: Male

DRUGS (2)
  1. CELECOXIB. [Suspect]
     Active Substance: CELECOXIB
     Dosage: UNK
  2. ALEVE [Concomitant]
     Active Substance: NAPROXEN SODIUM
     Dosage: UNK, 2X/DAY

REACTIONS (1)
  - Drug ineffective [Unknown]
